FAERS Safety Report 4577728-6 (Version None)
Quarter: 2005Q1

REPORT INFORMATION
  Report Type: 
  Country: None (occurrence: None)
  Receive Date: 20050208
  Receipt Date: 20050203
  Transmission Date: 20050727
  Serious: Yes (Other)
  Sender: FDA-Public Use
  Company Number: 167-20785-05020054

PATIENT
  Age: 44 Year
  Sex: Female

DRUGS (1)
  1. THALOMID [Suspect]
     Dosage: 100 MG, DAILY, ORAL
     Route: 047

REACTIONS (1)
  - BLOOD HUMAN CHORIONIC GONADOTROPIN INCREASED [None]
